FAERS Safety Report 7485153-3 (Version None)
Quarter: 2011Q2

REPORT INFORMATION
  Report Type: 
  Country: None (occurrence: None)
  Receive Date: 20110517
  Receipt Date: 20101130
  Transmission Date: 20111010
  Serious: Yes (Hospitalization)
  Sender: FDA-Public Use
  Company Number: US-BAYER-2010-006888

PATIENT
  Age: 27 Year
  Sex: Female
  Weight: 61.224 kg

DRUGS (7)
  1. YASMIN [Suspect]
     Dosage: UNK
     Dates: start: 20060101, end: 20100101
  2. NSAID'S [Concomitant]
  3. VICODIN ES [Concomitant]
     Indication: ENDOMETRIOSIS
     Dosage: UNK
     Dates: start: 20060101
  4. YASMIN [Suspect]
     Indication: ENDOMETRIOSIS
     Dosage: DAILY DOSE 1 DF
     Dates: start: 20020301, end: 20060101
  5. DROSPIRENONE AND ETHINYL ESTRADIOL [Suspect]
  6. ZITHROMAX [Concomitant]
     Indication: SINUSITIS
  7. YAZ [Suspect]
     Dosage: UNK

REACTIONS (6)
  - CHOLECYSTITIS CHRONIC [None]
  - NAUSEA [None]
  - BILIARY DYSKINESIA [None]
  - DIARRHOEA [None]
  - BILIARY COLIC [None]
  - ABDOMINAL PAIN UPPER [None]
